FAERS Safety Report 7052999-5 (Version None)
Quarter: 2010Q4

REPORT INFORMATION
  Report Type: 
  Country: None (occurrence: None)
  Receive Date: 20101020
  Receipt Date: 20101014
  Transmission Date: 20110411
  Serious: No
  Sender: FDA-Public Use
  Company Number: US-BIOGENIDEC-2010BI035544

PATIENT
  Sex: Female

DRUGS (1)
  1. AVONEX [Suspect]
     Indication: MULTIPLE SCLEROSIS
     Route: 030
     Dates: start: 20080301, end: 20090201

REACTIONS (11)
  - ALOPECIA [None]
  - ASTHENIA [None]
  - DEPRESSION [None]
  - DEVICE RELATED INFECTION [None]
  - DIABETES MELLITUS [None]
  - FAECAL INCONTINENCE [None]
  - INJECTION SITE SWELLING [None]
  - INJECTION SITE WARMTH [None]
  - PAIN [None]
  - PYREXIA [None]
  - URINARY INCONTINENCE [None]
